FAERS Safety Report 7969211-2 (Version None)
Quarter: 2011Q4

REPORT INFORMATION
  Report Type: 
  Country: None (occurrence: None)
  Receive Date: 20111209
  Receipt Date: 20111130
  Transmission Date: 20120403
  Serious: Yes (Hospitalization)
  Sender: FDA-Public Use
  Company Number: US-ASTRAZENECA-2010SE42337

PATIENT
  Age: 691 Month
  Sex: Female

DRUGS (3)
  1. CARAFATE [Concomitant]
  2. PRILOSEC [Suspect]
     Route: 048
  3. NEXIUM [Suspect]
     Dosage: 2 TIMES A DAY
     Route: 048

REACTIONS (3)
  - GASTRIC ULCER [None]
  - GASTROINTESTINAL HAEMORRHAGE [None]
  - GASTROINTESTINAL INFECTION [None]
